FAERS Safety Report 18650502 (Version 3)
Quarter: 2022Q2

REPORT INFORMATION
  Report Type: Spontaneous
  Country: US (occurrence: None)
  Receive Date: 20201222
  Receipt Date: 20220628
  Transmission Date: 20220721
  Serious: Yes (Hospitalization, Other)
  Sender: FDA-Public Use
  Company Number: 2020SF68325

PATIENT
  Age: 738 Month
  Sex: Female
  Weight: 72.6 kg

DRUGS (40)
  1. OMEPRAZOLE [Suspect]
     Active Substance: OMEPRAZOLE
     Indication: Gastrooesophageal reflux disease
     Dosage: GENERIC
     Route: 065
     Dates: start: 2011
  2. DEXILANT [Suspect]
     Active Substance: DEXLANSOPRAZOLE
     Indication: Gastrooesophageal reflux disease
     Route: 065
     Dates: start: 2009, end: 201606
  3. ATORVASTATIN [Concomitant]
     Active Substance: ATORVASTATIN
     Indication: Blood cholesterol increased
  4. LISINOPRIL [Concomitant]
     Active Substance: LISINOPRIL
     Indication: Hypertension
  5. CETIRIZINE [Concomitant]
     Active Substance: CETIRIZINE HYDROCHLORIDE
     Indication: Multiple allergies
  6. VICTOZA [Concomitant]
     Active Substance: LIRAGLUTIDE
     Indication: Diabetes mellitus
  7. FENOFIBRATE [Concomitant]
     Active Substance: FENOFIBRATE
     Indication: Blood cholesterol increased
  8. PHENTERMINE [Concomitant]
     Active Substance: PHENTERMINE
     Indication: Nausea
  9. GABAPENTIN [Concomitant]
     Active Substance: GABAPENTIN
     Indication: Neuralgia
  10. TRADJENTA [Concomitant]
     Active Substance: LINAGLIPTIN
     Indication: Diabetes mellitus
  11. ZETIA [Concomitant]
     Active Substance: EZETIMIBE
     Indication: Hyperlipidaemia
  12. ACETAMINOPHEN [Concomitant]
     Active Substance: ACETAMINOPHEN
  13. ASPIRIN [Concomitant]
     Active Substance: ASPIRIN
     Indication: Cardiac disorder
  14. ZYRTEC [Concomitant]
     Active Substance: CETIRIZINE HYDROCHLORIDE
     Indication: Multiple allergies
  15. VITAMIN D3 [Concomitant]
     Active Substance: CHOLECALCIFEROL
     Indication: Vitamin D deficiency
  16. FAMOTIDINE [Concomitant]
     Active Substance: FAMOTIDINE
  17. ZANTAC [Concomitant]
     Active Substance: RANITIDINE HYDROCHLORIDE
  18. RANITIDINE [Concomitant]
     Active Substance: RANITIDINE
  19. TUMS [Concomitant]
     Active Substance: CALCIUM CARBONATE
  20. AZITHROMYCIN [Concomitant]
     Active Substance: AZITHROMYCIN
  21. SYNTHROID [Concomitant]
     Active Substance: LEVOTHYROXINE SODIUM
  22. PHENTERMINE [Concomitant]
     Active Substance: PHENTERMINE
  23. BUPROPION [Concomitant]
     Active Substance: BUPROPION
  24. LIPITOR [Concomitant]
     Active Substance: ATORVASTATIN CALCIUM
  25. PREDNISONE [Concomitant]
     Active Substance: PREDNISONE
  26. MINOCYCLINE [Concomitant]
     Active Substance: MINOCYCLINE HYDROCHLORIDE
  27. TRETINOIN [Concomitant]
     Active Substance: TRETINOIN
  28. TRAMADOL [Concomitant]
     Active Substance: TRAMADOL
  29. ZESTORETIC [Concomitant]
     Active Substance: HYDROCHLOROTHIAZIDE\LISINOPRIL
  30. CHOLECALCEFEROL [Concomitant]
  31. RETIN-A [Concomitant]
     Active Substance: TRETINOIN
  32. OSCAL [Concomitant]
     Active Substance: CALCIUM CARBONATE
  33. QSYMIA [Concomitant]
     Active Substance: PHENTERMINE HYDROCHLORIDE\TOPIRAMATE
  34. XANAX [Concomitant]
     Active Substance: ALPRAZOLAM
  35. VOLTAREN [Concomitant]
     Active Substance: DICLOFENAC SODIUM
  36. TRICOR [Concomitant]
     Active Substance: FENOFIBRATE
  37. TESSALON [Concomitant]
     Active Substance: BENZONATATE
  38. DIETARY SUPPLEMENT [Concomitant]
     Active Substance: DIETARY SUPPLEMENT
  39. WELLBUTRIN [Concomitant]
     Active Substance: BUPROPION HYDROCHLORIDE
  40. VALIUM [Concomitant]
     Active Substance: DIAZEPAM

REACTIONS (6)
  - Chronic kidney disease [Not Recovered/Not Resolved]
  - Acute kidney injury [Not Recovered/Not Resolved]
  - Nephrogenic anaemia [Unknown]
  - Renal failure [Unknown]
  - Renal tubular acidosis [Unknown]
  - Kidney fibrosis [Unknown]

NARRATIVE: CASE EVENT DATE: 20110101
